FAERS Safety Report 17136153 (Version 1)
Quarter: 2019Q4

REPORT INFORMATION
  Report Type: Other
  Country: FR (occurrence: FR)
  Receive Date: 20191210
  Receipt Date: 20191210
  Transmission Date: 20200122
  Serious: Yes (Hospitalization)
  Sender: FDA-Public Use
  Company Number: FR-VALIDUS PHARMACEUTICALS LLC-FR-2019VAL000827

PATIENT

DRUGS (4)
  1. FUROSEMIDE. [Suspect]
     Active Substance: FUROSEMIDE
     Indication: FLUID OVERLOAD
     Dosage: 60 MG, QD
     Route: 042
     Dates: start: 20191023, end: 20191112
  2. FLUCONAZOLE. [Suspect]
     Active Substance: FLUCONAZOLE
     Indication: PANCREATIC NECROSIS
     Dosage: 400 MG, QD
     Route: 042
     Dates: start: 20191019, end: 20191111
  3. DIAMOX                             /00016901/ [Suspect]
     Active Substance: ACETAZOLAMIDE
     Indication: FLUID OVERLOAD
     Dosage: 750 MG, QD
     Route: 042
     Dates: start: 20191027, end: 20191105
  4. AMOXICILLIN. [Suspect]
     Active Substance: AMOXICILLIN
     Indication: PANCREATIC NECROSIS
     Dosage: 8 G, QD
     Route: 042
     Dates: start: 20191020, end: 20191112

REACTIONS (2)
  - Eosinophilia [Recovered/Resolved]
  - Eczema [Recovered/Resolved]

NARRATIVE: CASE EVENT DATE: 20191108
